FAERS Safety Report 8102413-3 (Version None)
Quarter: 2012Q1

REPORT INFORMATION
  Report Type: 
  Country: None (occurrence: None)
  Receive Date: 20120131
  Receipt Date: 20120131
  Transmission Date: 20120608
  Serious: No
  Sender: FDA-Public Use
  Company Number: None

PATIENT
  Sex: Male
  Weight: 86.9 kg

DRUGS (2)
  1. CARBOPLATIN [Suspect]
     Dosage: 300 MG
     Dates: end: 20120125
  2. TAXOL [Suspect]
     Dosage: 104 MG
     Dates: end: 20120125

REACTIONS (2)
  - LYMPHOCYTE COUNT DECREASED [None]
  - WHITE BLOOD CELL COUNT DECREASED [None]
